FAERS Safety Report 5228523-6 (Version None)
Quarter: 2007Q1

REPORT INFORMATION
  Report Type: 
  Country: None (occurrence: None)
  Receive Date: 20070205
  Receipt Date: 20070129
  Transmission Date: 20070707
  Serious: Yes (Death, Other)
  Sender: FDA-Public Use
  Company Number: RU-AVENTIS-200710507EU

PATIENT
  Age: 80 Year
  Sex: Male

DRUGS (1)
  1. CLEXANE [Suspect]
     Route: 058
     Dates: start: 20070109, end: 20070115

REACTIONS (3)
  - HAEMORRHAGE [None]
  - INJECTION SITE HAEMATOMA [None]
  - MYOCARDIAL INFARCTION [None]
